FAERS Safety Report 8119619-X (Version None)
Quarter: 2012Q1

REPORT INFORMATION
  Report Type: 
  Country: None (occurrence: None)
  Receive Date: 20120207
  Receipt Date: 20120203
  Transmission Date: 20120608
  Serious: Yes (Other)
  Sender: FDA-Public Use
  Company Number: ES-PFIZER INC-2012029639

PATIENT
  Age: 43 Year
  Sex: Female

DRUGS (2)
  1. NEURONTIN [Suspect]
     Dosage: 600 MG DAILY
  2. CLONAZEPAM [Concomitant]

REACTIONS (8)
  - CONTUSION [None]
  - TACHYCARDIA [None]
  - FLUSHING [None]
  - ARTHRALGIA [None]
  - VISION BLURRED [None]
  - PRURITUS [None]
  - WOUND [None]
  - COORDINATION ABNORMAL [None]
